FAERS Safety Report 7145952-4 (Version None)
Quarter: 2010Q4

REPORT INFORMATION
  Report Type: 
  Country: None (occurrence: None)
  Receive Date: 20101208
  Receipt Date: 20101125
  Transmission Date: 20110411
  Serious: Yes (Hospitalization, Other)
  Sender: FDA-Public Use
  Company Number: HU-ELI_LILLY_AND_COMPANY-HU201010006288

PATIENT
  Age: 72 Year
  Sex: Female

DRUGS (3)
  1. TERIPARATIDE [Suspect]
     Indication: OSTEOPOROSIS
     Dosage: 20 UG, DAILY (1/D)
     Route: 058
     Dates: start: 20100701
  2. CALCIUM [Concomitant]
     Dosage: UNK, UNKNOWN
     Route: 065
  3. VITAMIN D3 [Concomitant]
     Dosage: UNK, UNKNOWN
     Route: 065

REACTIONS (7)
  - HYPERKERATOSIS [None]
  - HYPERTENSION [None]
  - LACTOSE INTOLERANCE [None]
  - LEUKOCYTOCLASTIC VASCULITIS [None]
  - OSTEOPOROSIS [None]
  - SKIN ULCER [None]
  - STAPHYLOCOCCAL INFECTION [None]
